FAERS Safety Report 6185606-4 (Version None)
Quarter: 2009Q2

REPORT INFORMATION
  Report Type: 
  Country: None (occurrence: None)
  Receive Date: 20090511
  Receipt Date: 20090429
  Transmission Date: 20091009
  Serious: Yes (Other)
  Sender: FDA-Public Use
  Company Number: US-PFIZER INC-2009205942

PATIENT

DRUGS (3)
  1. XANAX [Suspect]
  2. SEROQUEL [Suspect]
  3. PAXIL [Suspect]

REACTIONS (1)
  - INTENTIONAL OVERDOSE [None]
